FAERS Safety Report 19648133 (Version 1)
Quarter: 2021Q3

REPORT INFORMATION
  Report Type: Spontaneous
  Country: CA (occurrence: CA)
  Receive Date: 20210802
  Receipt Date: 20210802
  Transmission Date: 20211014
  Serious: Yes (Hospitalization, Other)
  Sender: FDA-Public Use
  Company Number: CA-PFIZER INC-2019079880

PATIENT
  Age: 61 Year
  Sex: Female

DRUGS (6)
  1. XELJANZ [Suspect]
     Active Substance: TOFACITINIB CITRATE
     Dosage: 5 MG, 2X/DAY
     Route: 048
     Dates: start: 20190722, end: 2021
  2. CESAMET [Concomitant]
     Active Substance: NABILONE
     Indication: RHEUMATOID ARTHRITIS
     Dosage: 1 DF
     Route: 065
     Dates: start: 2020
  3. METHOTREXATE. [Concomitant]
     Active Substance: METHOTREXATE
     Indication: RHEUMATOID ARTHRITIS
     Dosage: 12.5 MG, UNK
     Route: 058
  4. TYLENOL 8HR [Concomitant]
     Active Substance: ACETAMINOPHEN
     Indication: RHEUMATOID ARTHRITIS
     Dosage: 1 DF
     Route: 065
  5. XELJANZ [Suspect]
     Active Substance: TOFACITINIB CITRATE
     Indication: RHEUMATOID ARTHRITIS
     Dosage: 5 MG, 2X/DAY
     Route: 048
     Dates: start: 20190206, end: 201904
  6. CBD OIL [Concomitant]
     Active Substance: CANNABIDIOL\HERBALS
     Dosage: 1 DF
     Dates: start: 2020

REACTIONS (10)
  - Panniculitis [Unknown]
  - Back pain [Not Recovered/Not Resolved]
  - Dehydration [Unknown]
  - Mouth ulceration [Unknown]
  - Oral pain [Recovering/Resolving]
  - Stomatitis [Unknown]
  - Large intestine infection [Not Recovered/Not Resolved]
  - Gait disturbance [Unknown]
  - Pain [Unknown]
  - Infection [Recovered/Resolved]

NARRATIVE: CASE EVENT DATE: 201902
